FAERS Safety Report 5060199-3 (Version None)
Quarter: 2006Q3

REPORT INFORMATION
  Report Type: 
  Country: None (occurrence: None)
  Receive Date: 20060718
  Receipt Date: 20060629
  Transmission Date: 20061208
  Serious: Yes (Hospitalization)
  Sender: FDA-Public Use
  Company Number: FR200606005922

PATIENT
  Age: 77 Year
  Sex: Female

DRUGS (1)
  1. GEMZAR [Suspect]
     Indication: ADENOCARCINOMA PANCREAS
     Dosage: INTRAVENOUS
     Route: 042
     Dates: start: 20060301, end: 20060519

REACTIONS (1)
  - CHOLANGITIS SUPPURATIVE [None]
